FAERS Safety Report 6844799-3 (Version None)
Quarter: 2010Q3

REPORT INFORMATION
  Report Type: 
  Country: None (occurrence: None)
  Receive Date: 20100715
  Receipt Date: 20100714
  Transmission Date: 20110219
  Serious: Yes (Hospitalization)
  Sender: FDA-Public Use
  Company Number: GB-TEVA-241271ISR

PATIENT
  Age: 18 Year
  Sex: Male

DRUGS (2)
  1. PROPRANOLOL [Suspect]
     Indication: AUTOIMMUNE THYROIDITIS
  2. CARBIMAZOLE [Suspect]
     Indication: AUTOIMMUNE THYROIDITIS

REACTIONS (2)
  - NEUTROPENIC SEPSIS [None]
  - OROPHARYNGEAL PAIN [None]
